FAERS Safety Report 4263867-6 (Version None)
Quarter: 2004Q1

REPORT INFORMATION
  Report Type: 
  Country: None (occurrence: None)
  Receive Date: 20040102
  Receipt Date: 20031216
  Transmission Date: 20041129
  Serious: Yes (Hospitalization)
  Sender: FDA-Public Use
  Company Number: GBS031214188

PATIENT
  Age: 78 Year
  Sex: Female

DRUGS (5)
  1. CEFTAZIDIME PENTAHYDRATE [Suspect]
     Dosage: 1 G
     Dates: start: 20031204, end: 20031204
  2. VENTOLIN [Concomitant]
  3. ATROVENT [Concomitant]
  4. PREDNISOLONE [Concomitant]
  5. VITAMIN B-12 [Concomitant]

REACTIONS (4)
  - CYANOSIS [None]
  - DEPRESSED LEVEL OF CONSCIOUSNESS [None]
  - DYSPNOEA EXACERBATED [None]
  - FLUSHING [None]
